FAERS Safety Report 22178336 (Version 1)
Quarter: 2023Q2

REPORT INFORMATION
  Report Type: Spontaneous
  Country: US (occurrence: US)
  Receive Date: 20230405
  Receipt Date: 20230405
  Transmission Date: 20230721
  Serious: Yes (Other)
  Sender: FDA-Public Use
  Company Number: US-INCYTE CORPORATION-2023IN002138

PATIENT

DRUGS (2)
  1. JAKAFI [Suspect]
     Active Substance: RUXOLITINIB
     Indication: Polycythaemia vera
     Dosage: 20MG EVERY MORNING  AND 10MG EVERY EVENING
     Route: 048
     Dates: start: 20210202
  2. JAKAFI [Suspect]
     Active Substance: RUXOLITINIB
     Dosage: 20MG EVERY MORNING  AND 10MG EVERY EVENING
     Route: 048
     Dates: start: 20210226

REACTIONS (5)
  - Hallucination [Unknown]
  - Dysphagia [Unknown]
  - Fatigue [Unknown]
  - Emotional disorder [Unknown]
  - Wrong technique in product usage process [Unknown]
